FAERS Safety Report 9898629 (Version 2)
Quarter: 2014Q1

REPORT INFORMATION
  Report Type: Spontaneous
  Country: US (occurrence: US)
  Receive Date: 20140214
  Receipt Date: 20140303
  Transmission Date: 20141002
  Serious: Yes (Hospitalization)
  Sender: FDA-Public Use
  Company Number: US-BAXTER-2014BAX006612

PATIENT
  Sex: Male

DRUGS (8)
  1. DIANEAL LOW CALCIUM [Suspect]
     Indication: PERITONEAL DIALYSIS
     Route: 033
     Dates: start: 20131129, end: 20140129
  2. DIANEAL LOW CALCIUM [Suspect]
     Route: 033
     Dates: start: 20140215
  3. DIANEAL LOW CALCIUM [Suspect]
     Indication: PERITONEAL DIALYSIS
     Route: 033
     Dates: start: 20131129, end: 20140129
  4. DIANEAL LOW CALCIUM [Suspect]
     Route: 033
     Dates: start: 20140215
  5. DIANEAL LOW CALCIUM (ULTRABAG) [Suspect]
     Indication: PERITONEAL DIALYSIS
     Route: 033
  6. DIANEAL LOW CALCIUM (ULTRABAG) [Suspect]
     Indication: PERITONEAL DIALYSIS
     Route: 033
  7. EXTRANEAL [Suspect]
     Indication: PERITONEAL DIALYSIS
     Route: 033
     Dates: start: 20131129, end: 20140129
  8. EXTRANEAL [Suspect]
     Route: 033
     Dates: start: 20140215

REACTIONS (2)
  - Hernia [Recovered/Resolved]
  - Abdominal pain [Recovered/Resolved]
